FAERS Safety Report 26061382 (Version 2)
Quarter: 2025Q4

REPORT INFORMATION
  Report Type: Spontaneous
  Country: EU (occurrence: EU)
  Receive Date: 20251118
  Receipt Date: 20251225
  Transmission Date: 20260118
  Serious: No
  Sender: ASTELLAS
  Company Number: EU-ASTELLAS-2025-AER-062264

PATIENT
  Age: 56 Year
  Sex: Female

DRUGS (1)
  1. VEOZAH [Suspect]
     Active Substance: FEZOLINETANT
     Indication: Menopausal symptoms
     Route: 048

REACTIONS (4)
  - Headache [Recovered/Resolved]
  - Alanine aminotransferase increased [Unknown]
  - Aspartate aminotransferase increased [Unknown]
  - Osteopenia [Unknown]
